FAERS Safety Report 19036551 (Version 2)
Quarter: 2021Q2

REPORT INFORMATION
  Report Type: Spontaneous
  Country: US (occurrence: US)
  Receive Date: 20210322
  Receipt Date: 20210414
  Transmission Date: 20210717
  Serious: Yes (Death, Life-Threatening, Hospitalization, Other)
  Sender: FDA-Public Use
  Company Number: US-SA-2021SA093220

PATIENT
  Age: 17 Month
  Sex: Male

DRUGS (2)
  1. NICOTINE. [Suspect]
     Active Substance: NICOTINE
     Dosage: 18 MG/ML OF NICOTINE AND WAS 16.5 ML IN VOLUME
     Route: 062
  2. NICOTINE. [Suspect]
     Active Substance: NICOTINE
     Dosage: 18 MG/ML OF NICOTINE AND WAS 16.5 ML IN VOLUME
     Route: 048

REACTIONS (5)
  - Cyanosis [Fatal]
  - Drug level increased [Fatal]
  - Accidental overdose [Fatal]
  - Unresponsive to stimuli [Fatal]
  - Cardiac arrest [Fatal]
